FAERS Safety Report 6043418-6 (Version None)
Quarter: 2009Q1

REPORT INFORMATION
  Report Type: 
  Country: None (occurrence: None)
  Receive Date: 20090115
  Receipt Date: 20090115
  Transmission Date: 20090719
  Serious: No
  Sender: FDA-Public Use
  Company Number: None

PATIENT
  Sex: Female
  Weight: 113.3993 kg

DRUGS (1)
  1. ATIVAN, GENERIC [Suspect]
     Indication: ANXIETY
     Dosage: 1 MG PO
     Route: 048
     Dates: start: 20080101

REACTIONS (4)
  - HALLUCINATION [None]
  - PALPITATIONS [None]
  - RASH PRURITIC [None]
  - REACTION TO DRUG EXCIPIENTS [None]
